FAERS Safety Report 14984021 (Version 2)
Quarter: 2018Q3

REPORT INFORMATION
  Report Type: Spontaneous
  Country: IN (occurrence: IN)
  Receive Date: 20180607
  Receipt Date: 20180726
  Transmission Date: 20181010
  Serious: No
  Sender: FDA-Public Use
  Company Number: IN-AMGEN-INDSP2018074243

PATIENT
  Age: 59 Year
  Sex: Male

DRUGS (1)
  1. CINACALCET HCL [Suspect]
     Active Substance: CINACALCET HYDROCHLORIDE
     Indication: HYPERPARATHYROIDISM TERTIARY
     Dosage: 30 MG, BID
     Route: 065

REACTIONS (2)
  - Bone disorder [Unknown]
  - Off label use [Unknown]
